FAERS Safety Report 4930612-8 (Version None)
Quarter: 2006Q1

REPORT INFORMATION
  Report Type: 
  Country: None (occurrence: None)
  Receive Date: 20060302
  Receipt Date: 20051004
  Transmission Date: 20060701
  Serious: Yes (Death, Hospitalization, Other)
  Sender: FDA-Public Use
  Company Number: US-MERCK-0510USA02623

PATIENT
  Age: 68 Year
  Sex: Female
  Weight: 73 kg

DRUGS (2)
  1. VIOXX [Suspect]
     Indication: ARTHRITIS
     Route: 048
     Dates: start: 20000426, end: 20001101
  2. VIOXX [Suspect]
     Indication: PAIN MANAGEMENT
     Route: 048
     Dates: start: 20000426, end: 20001101

REACTIONS (6)
  - ARTERIOSCLEROSIS CORONARY ARTERY [None]
  - CARDIOVASCULAR DISORDER [None]
  - CORONARY ARTERY OCCLUSION [None]
  - DEATH [None]
  - ISCHAEMIC STROKE [None]
  - MYOCARDIAL INFARCTION [None]
